FAERS Safety Report 8424015-1 (Version None)
Quarter: 2012Q2

REPORT INFORMATION
  Report Type: 
  Country: None (occurrence: None)
  Receive Date: 20120608
  Receipt Date: 20120604
  Transmission Date: 20120825
  Serious: Yes (Hospitalization)
  Sender: FDA-Public Use
  Company Number: PHHY2012IT048839

PATIENT
  Sex: Male

DRUGS (3)
  1. NORVASC [Concomitant]
  2. OLMESARTAN MEDOXOMIL [Concomitant]
  3. ATENOLOL CLORTALIDONA [Suspect]
     Indication: HYPERTENSION
     Dosage: 112.5 MG DAILY DOSE
     Route: 048
     Dates: start: 20120326, end: 20120526

REACTIONS (4)
  - HYPOKALAEMIA [None]
  - CONFUSIONAL STATE [None]
  - VERTIGO [None]
  - GAIT DISTURBANCE [None]
